FAERS Safety Report 14095776 (Version 2)
Quarter: 2023Q2

REPORT INFORMATION
  Report Type: Spontaneous
  Country: US (occurrence: US)
  Receive Date: 20171017
  Receipt Date: 20230425
  Transmission Date: 20230721
  Serious: Yes (Other)
  Sender: FDA-Public Use
  Company Number: US-009507513-1709USA012585

PATIENT
  Age: 36 Year
  Sex: Male

DRUGS (2)
  1. KEYTRUDA [Suspect]
     Active Substance: PEMBROLIZUMAB
     Indication: Mismatch repair cancer syndrome
     Dosage: 200 MG, EVERY THREE WEEKS
     Route: 042
     Dates: start: 20170707
  2. KEYTRUDA [Suspect]
     Active Substance: PEMBROLIZUMAB
     Indication: Hereditary non-polyposis colorectal cancer syndrome

REACTIONS (3)
  - Recurrent cancer [Unknown]
  - Microsatellite instability cancer [Unknown]
  - Carcinoembryonic antigen decreased [Unknown]

NARRATIVE: CASE EVENT DATE: 20170707
